FAERS Safety Report 13687938 (Version 37)
Quarter: 2023Q4

REPORT INFORMATION
  Report Type: Other
  Country: CA (occurrence: None)
  Receive Date: 20170626
  Receipt Date: 20231221
  Transmission Date: 20240110
  Serious: Yes (Other)
  Sender: FDA-Public Use
  Company Number: CA-ROCHE-1196834

PATIENT
  Age: 45 Year
  Sex: Female
  Weight: 75 kg

DRUGS (6)
  1. ACTEMRA [Suspect]
     Active Substance: TOCILIZUMAB
     Indication: Rheumatoid arthritis
     Dosage: B4005 2023-AUG-31
     Route: 042
     Dates: start: 20110309, end: 20141209
  2. ACTEMRA [Suspect]
     Active Substance: TOCILIZUMAB
     Route: 042
     Dates: start: 20111230
  3. ACTEMRA [Suspect]
     Active Substance: TOCILIZUMAB
     Route: 042
     Dates: start: 20170613
  4. ACTEMRA [Suspect]
     Active Substance: TOCILIZUMAB
     Route: 042
     Dates: start: 20141230
  5. LEFLUNOMIDE [Concomitant]
     Active Substance: LEFLUNOMIDE
     Indication: Product used for unknown indication
  6. PREDNISONE [Concomitant]
     Active Substance: PREDNISONE
     Indication: Product used for unknown indication

REACTIONS (21)
  - Blister [Not Recovered/Not Resolved]
  - Osteoporosis [Unknown]
  - Ill-defined disorder [Unknown]
  - Lower respiratory tract infection [Recovered/Resolved]
  - Skin infection [Not Recovered/Not Resolved]
  - Localised infection [Unknown]
  - Sinusitis [Not Recovered/Not Resolved]
  - Infection [Unknown]
  - Influenza [Unknown]
  - Respiratory tract infection [Recovered/Resolved]
  - Oxygen saturation decreased [Unknown]
  - Heart rate decreased [Unknown]
  - Lower respiratory tract infection [Recovering/Resolving]
  - Sinusitis [Recovering/Resolving]
  - Weight increased [Recovered/Resolved]
  - Pharyngitis [Unknown]
  - Productive cough [Unknown]
  - Nasopharyngitis [Not Recovered/Not Resolved]
  - Blood pressure systolic abnormal [Unknown]
  - Blood pressure systolic increased [Unknown]
  - Blood pressure diastolic abnormal [Unknown]

NARRATIVE: CASE EVENT DATE: 20121226
